FAERS Safety Report 12625158 (Version 1)
Quarter: 2016Q3

REPORT INFORMATION
  Report Type: Spontaneous
  Country: US (occurrence: US)
  Receive Date: 20160805
  Receipt Date: 20160805
  Transmission Date: 20161109
  Serious: No
  Sender: FDA-Public Use
  Company Number: US-TAKEDA-2016TUS013388

PATIENT
  Sex: Female

DRUGS (2)
  1. ENTYVIO [Suspect]
     Active Substance: VEDOLIZUMAB
     Indication: DYSGEUSIA
  2. ENTYVIO [Suspect]
     Active Substance: VEDOLIZUMAB
     Indication: NAUSEA
     Dosage: UNK
     Route: 042

REACTIONS (2)
  - Dysgeusia [Unknown]
  - Nausea [Unknown]
